FAERS Safety Report 5466844-2 (Version None)
Quarter: 2007Q3

REPORT INFORMATION
  Report Type: 
  Country: None (occurrence: None)
  Receive Date: 20070925
  Receipt Date: 20070920
  Transmission Date: 20080115
  Serious: Yes (Other)
  Sender: FDA-Public Use
  Company Number: FR-BRISTOL-MYERS SQUIBB COMPANY-13917521

PATIENT
  Age: 68 Year
  Sex: Male

DRUGS (1)
  1. APROVEL TABS 300 MG [Suspect]
     Indication: HYPERTENSION
     Route: 048
     Dates: start: 20070301

REACTIONS (2)
  - SUDDEN HEARING LOSS [None]
  - TINNITUS [None]
